FAERS Safety Report 6137519-1 (Version None)
Quarter: 2009Q1

REPORT INFORMATION
  Report Type: 
  Country: None (occurrence: None)
  Receive Date: 20090326
  Receipt Date: 20090311
  Transmission Date: 20090719
  Serious: Yes (Death, Hospitalization)
  Sender: FDA-Public Use
  Company Number: 2009000772

PATIENT
  Age: 77 Year
  Sex: Male

DRUGS (8)
  1. TARCEVA [Suspect]
     Indication: LUNG ADENOCARCINOMA STAGE III
     Dosage: (100 MG,QD), ORAL
     Route: 048
     Dates: start: 20070802
  2. METFORMIN HCL [Concomitant]
  3. GLYBENCLAMIDE [Concomitant]
  4. REPAGLINIDE [Concomitant]
  5. DOXAZOSIN (DOXAZOSIN) [Concomitant]
  6. OMEPRAZOLE [Concomitant]
  7. PREDNISONE TAB [Concomitant]
  8. FUROSEMIDE [Concomitant]

REACTIONS (8)
  - ANION GAP INCREASED [None]
  - BLOOD GLUCOSE INCREASED [None]
  - DELIRIUM [None]
  - HEPATITIS ACUTE [None]
  - LACTIC ACIDOSIS [None]
  - PALLOR [None]
  - RENAL FAILURE [None]
  - TACHYPNOEA [None]
